FAERS Safety Report 6007135-0 (Version None)
Quarter: 2008Q4

REPORT INFORMATION
  Report Type: 
  Country: None (occurrence: None)
  Receive Date: 20081217
  Receipt Date: 20080125
  Transmission Date: 20090506
  Serious: No
  Sender: FDA-Public Use
  Company Number: US-ASTRAZENECA-2008UW01922

PATIENT
  Age: 78 Year
  Sex: Female
  Weight: 65.8 kg

DRUGS (11)
  1. CRESTOR [Suspect]
     Indication: BLOOD CHOLESTEROL INCREASED
     Route: 048
  2. LEVOTHYROXINE SODIUM [Concomitant]
  3. PROVENTIL [Concomitant]
  4. PROTONIX [Concomitant]
  5. RESTORIL [Concomitant]
  6. BENADRYL [Concomitant]
  7. ALLEGRA [Concomitant]
  8. LOPROX [Concomitant]
  9. VITAMINS [Concomitant]
  10. FISH OIL [Concomitant]
  11. EYE DROPS [Concomitant]

REACTIONS (1)
  - POLLAKIURIA [None]
